FAERS Safety Report 21031032 (Version 2)
Quarter: 2023Q2

REPORT INFORMATION
  Report Type: Spontaneous
  Country: US (occurrence: None)
  Receive Date: 20220701
  Receipt Date: 20230517
  Transmission Date: 20230721
  Serious: No
  Sender: FDA-Public Use
  Company Number: US-ROCHE-3062787

PATIENT
  Sex: Female

DRUGS (3)
  1. ACTEMRA [Suspect]
     Active Substance: TOCILIZUMAB
     Indication: Senile osteoporosis
     Dosage: LAST DOSE OF THE MEDICATION WAS 23/MAR/2022
     Route: 058
     Dates: start: 20220206
  2. ACTEMRA [Suspect]
     Active Substance: TOCILIZUMAB
  3. TYLENOL [Concomitant]
     Active Substance: ACETAMINOPHEN

REACTIONS (2)
  - Product storage error [Unknown]
  - No adverse event [Unknown]
